FAERS Safety Report 8023616-2 (Version None)
Quarter: 2012Q1

REPORT INFORMATION
  Report Type: 
  Country: None (occurrence: None)
  Receive Date: 20120104
  Receipt Date: 20120104
  Transmission Date: 20120608
  Serious: Yes (Life-Threatening, Hospitalization)
  Sender: FDA-Public Use
  Company Number: None

PATIENT
  Age: 66 Year
  Sex: Male
  Weight: 168.6 kg

DRUGS (1)
  1. SULFAMETHOXAZOLE AND TRIMETHOPRIM [Suspect]
     Indication: OSTEOMYELITIS CHRONIC
     Dosage: 1 TAB EVERY DAY PO
     Route: 048
     Dates: start: 20071218, end: 20100311

REACTIONS (6)
  - RASH [None]
  - COUGH [None]
  - HYPOTENSION [None]
  - VISION BLURRED [None]
  - ANAPHYLACTIC REACTION [None]
  - WHEEZING [None]
